FAERS Safety Report 9714450 (Version 1)
Quarter: 2013Q4

REPORT INFORMATION
  Report Type: Spontaneous
  Country: US (occurrence: US)
  Receive Date: 20131126
  Receipt Date: 20131126
  Transmission Date: 20140711
  Serious: No
  Sender: FDA-Public Use
  Company Number: US-BIOGENIDEC-2013BI080702

PATIENT
  Age: 48 Year
  Sex: Male

DRUGS (7)
  1. TECFIDERA [Suspect]
     Indication: MULTIPLE SCLEROSIS
     Route: 048
     Dates: start: 201307
  2. LISINOPRIL [Concomitant]
  3. NUVIGIL [Concomitant]
  4. PROZAC [Concomitant]
  5. SIMVASTATIN [Concomitant]
  6. TRICOR [Concomitant]
  7. WELLBUTRIN XL [Concomitant]

REACTIONS (2)
  - Flushing [Unknown]
  - Joint swelling [Unknown]
